FAERS Safety Report 5934846-5 (Version None)
Quarter: 2008Q4

REPORT INFORMATION
  Report Type: 
  Country: None (occurrence: None)
  Receive Date: 20081027
  Receipt Date: 20081020
  Transmission Date: 20090506
  Serious: Yes (Hospitalization)
  Sender: FDA-Public Use
  Company Number: 035675

PATIENT
  Age: 52 Year
  Sex: Male

DRUGS (3)
  1. METHOTREXATE [Suspect]
     Indication: PSORIATIC ARTHROPATHY
     Dosage: 20 MG, 1 IN 1 WEEKS,
     Dates: start: 20070701, end: 20080611
  2. ENBREL [Suspect]
     Indication: PSORIASIS
     Dosage: 50 MG, 1 IN 1 WEEKS, SUBCUTANEOUS
     Route: 058
     Dates: start: 20080524, end: 20080614
  3. CELECOXIB [Concomitant]

REACTIONS (3)
  - CHOLELITHIASIS [None]
  - HEADACHE [None]
  - HEPATITIS [None]
